FAERS Safety Report 25366429 (Version 2)
Quarter: 2025Q2

REPORT INFORMATION
  Report Type: Report from Study
  Country: PE (occurrence: PE)
  Receive Date: 20250528
  Receipt Date: 20250610
  Transmission Date: 20250716
  Serious: Yes (Hospitalization, Other)
  Sender: BIOVITRUM
  Company Number: PE-AstraZeneca-CH-00875298A

PATIENT
  Age: 5 Month
  Sex: Female

DRUGS (1)
  1. SYNAGIS [Suspect]
     Active Substance: PALIVIZUMAB
     Indication: Antiviral prophylaxis
     Route: 030
     Dates: start: 20250203

REACTIONS (3)
  - Haemoglobin decreased [Recovering/Resolving]
  - Bowel movement irregularity [Unknown]
  - Decreased appetite [Unknown]

NARRATIVE: CASE EVENT DATE: 20250519
